FAERS Safety Report 4424579-9 (Version None)
Quarter: 2004Q3

REPORT INFORMATION
  Report Type: 
  Country: None (occurrence: None)
  Receive Date: 20040719
  Receipt Date: 20031112
  Transmission Date: 20050211
  Serious: Yes (Hospitalization)
  Sender: FDA-Public Use
  Company Number: 185915

PATIENT
  Age: 53 Year
  Sex: Female
  Weight: 72.5755 kg

DRUGS (3)
  1. AVONEX [Suspect]
     Indication: MULTIPLE SCLEROSIS
     Dosage: 30 MCG QW IM
     Route: 030
  2. AVONEX [Suspect]
     Indication: MULTIPLE SCLEROSIS
     Dosage: 30 M CG QW IM
     Route: 030
     Dates: start: 20021001, end: 20031001
  3. AVONEX [Suspect]
     Indication: MULTIPLE SCLEROSIS
     Dosage: 30 MCG QW IM
     Route: 030
     Dates: start: 20031001

REACTIONS (13)
  - ASTHENIA [None]
  - BLOOD CHOLESTEROL INCREASED [None]
  - BONE DENSITY DECREASED [None]
  - CYSTITIS [None]
  - HYPERCHLORHYDRIA [None]
  - INFLUENZA LIKE ILLNESS [None]
  - MULTIPLE SCLEROSIS [None]
  - MULTIPLE SCLEROSIS RELAPSE [None]
  - MUSCLE CRAMP [None]
  - MUSCLE SPASMS [None]
  - POLLAKIURIA [None]
  - STRESS SYMPTOMS [None]
  - WEIGHT INCREASED [None]
